FAERS Safety Report 12446883 (Version 1)
Quarter: 2016Q2

REPORT INFORMATION
  Report Type: Spontaneous
  Country: MX (occurrence: MX)
  Receive Date: 20160608
  Receipt Date: 20160608
  Transmission Date: 20160815
  Serious: Yes (Hospitalization, Other)
  Sender: FDA-Public Use
  Company Number: MX-SA-2016SA106612

PATIENT
  Age: 65 Year
  Sex: Female
  Weight: 52.5 kg

DRUGS (3)
  1. ARAVA [Suspect]
     Active Substance: LEFLUNOMIDE
     Indication: RHEUMATOID ARTHRITIS
     Dosage: 1 ORAL TABLET OF 20 MG OF LEFLUNOMIDE (ARAVA ?) EVERY 24 HOURS FROM MONDAY TO FRIDAY
     Route: 048
     Dates: start: 20160528
  2. CALCORT [Suspect]
     Active Substance: DEFLAZACORT
     Indication: RHEUMATOID ARTHRITIS
     Dosage: DOSE HALF TAB
     Route: 048
     Dates: start: 2006, end: 201603
  3. ARAVA [Suspect]
     Active Substance: LEFLUNOMIDE
     Indication: RHEUMATOID ARTHRITIS
     Route: 048
     Dates: start: 2006, end: 201603

REACTIONS (3)
  - Arrhythmia [Recovered/Resolved]
  - Renal failure [Not Recovered/Not Resolved]
  - Inappropriate schedule of drug administration [Unknown]

NARRATIVE: CASE EVENT DATE: 2006
